FAERS Safety Report 5303519-4 (Version None)
Quarter: 2007Q2

REPORT INFORMATION
  Report Type: 
  Country: None (occurrence: None)
  Receive Date: 20070420
  Receipt Date: 20070409
  Transmission Date: 20071010
  Serious: Yes (Hospitalization, Other)
  Sender: FDA-Public Use
  Company Number: US-PFIZER INC-2007029878

PATIENT
  Sex: Female

DRUGS (7)
  1. CEREBYX [Suspect]
     Indication: CONVULSION
     Dosage: DAILY DOSE:1GRAM
     Dates: start: 20010822, end: 20010822
  2. DILANTIN [Suspect]
     Indication: CONVULSION
     Route: 048
     Dates: start: 20010822, end: 20010929
  3. DEPAKOTE [Suspect]
     Indication: CONVULSION
  4. MICARDIS [Concomitant]
  5. NORVASC [Concomitant]
  6. PREMARIN [Concomitant]
  7. TYLENOL [Concomitant]

REACTIONS (16)
  - ANAEMIA [None]
  - BACK PAIN [None]
  - DYSPHAGIA [None]
  - FOLLICULITIS [None]
  - HEADACHE [None]
  - HEPATITIS [None]
  - HYPERSENSITIVITY [None]
  - LIVER FUNCTION TEST ABNORMAL [None]
  - LYMPHADENITIS [None]
  - MALAISE [None]
  - MUCOSAL INFLAMMATION [None]
  - MYALGIA [None]
  - PYREXIA [None]
  - SWELLING [None]
  - URTICARIA [None]
  - WHITE BLOOD CELL COUNT INCREASED [None]
